FAERS Safety Report 16973729 (Version 7)
Quarter: 2020Q1

REPORT INFORMATION
  Report Type: Spontaneous
  Country: US (occurrence: US)
  Receive Date: 20191030
  Receipt Date: 20200207
  Transmission Date: 20200409
  Serious: No
  Sender: FDA-Public Use
  Company Number: US-PFIZER INC-2019465329

PATIENT
  Age: 66 Year
  Sex: Female
  Weight: 61.23 kg

DRUGS (4)
  1. SKELAXIN [Suspect]
     Active Substance: METAXALONE
     Indication: MUSCLE RELAXANT THERAPY
  2. NAPROXEN. [Concomitant]
     Active Substance: NAPROXEN
     Dosage: UNK
  3. SKELAXIN [Suspect]
     Active Substance: METAXALONE
     Indication: SCIATICA
  4. SKELAXIN [Suspect]
     Active Substance: METAXALONE
     Indication: MENISCUS INJURY
     Dosage: UNK
     Dates: start: 2006, end: 20190919

REACTIONS (3)
  - Drug ineffective [Recovered/Resolved]
  - Constipation [Unknown]
  - Gait disturbance [Unknown]
